FAERS Safety Report 10404140 (Version 1)
Quarter: 2014Q1

REPORT INFORMATION
  Report Type: Spontaneous
  Country: US (occurrence: None)
  Receive Date: 20131223
  Receipt Date: 20131223
  Transmission Date: 20141002
  Serious: No
  Sender: FDA-Public Use
  Company Number: PHHY2013US080214

PATIENT
  Age: 38 Year
  Sex: Female

DRUGS (1)
  1. GILENYA (FINGOLIMOD) CAPSULE, 0.5MG [Suspect]
     Indication: MULTIPLE SCLEROSIS
     Route: 048
     Dates: start: 20110301

REACTIONS (7)
  - Local swelling [None]
  - Trigeminal neuralgia [None]
  - Multiple sclerosis relapse [None]
  - Drug ineffective [None]
  - Fatigue [None]
  - Muscle spasms [None]
  - Joint stiffness [None]
